FAERS Safety Report 8054420-7 (Version None)
Quarter: 2012Q1

REPORT INFORMATION
  Report Type: 
  Country: None (occurrence: None)
  Receive Date: 20120118
  Receipt Date: 20120109
  Transmission Date: 20120608
  Serious: Yes (Other)
  Sender: FDA-Public Use
  Company Number: US-ASTRAZENECA-2011SE70647

PATIENT
  Age: 52 Year
  Sex: Female
  Weight: 60.8 kg

DRUGS (13)
  1. NEXIUM [Suspect]
     Route: 048
  2. FLONASE [Concomitant]
     Dosage: 2 SPRAYS EACH NOSTRIL DAILY
  3. VYVANSE [Concomitant]
     Route: 048
  4. VALIUM [Concomitant]
     Indication: SLEEP DISORDER
     Route: 048
  5. NAPROXEN (ALEVE) [Concomitant]
  6. ADDERALL 5 [Concomitant]
     Route: 048
  7. ALLEGRA [Concomitant]
  8. CYMBALTA [Concomitant]
     Route: 048
  9. PROZAC [Concomitant]
     Route: 048
  10. CLONAZEPAM [Concomitant]
     Route: 048
  11. TRIAMCINOLONE ACETONIDE [Concomitant]
     Dosage: APPLY CREAM TO AFFECTED AREA EVERY 12 HOURS
  12. VERAMYST [Concomitant]
     Dosage: 2 SPRAY (55MCG) EVERYDAY IN EACH NOSTRIL
     Route: 045
  13. ZINC [Concomitant]

REACTIONS (30)
  - HAEMORRHOIDS [None]
  - RHINITIS SEASONAL [None]
  - ATTENTION DEFICIT/HYPERACTIVITY DISORDER [None]
  - ANAEMIA [None]
  - HEPATITIS C [None]
  - SEBORRHOEIC DERMATITIS [None]
  - ANXIETY [None]
  - DEPRESSION [None]
  - GASTRITIS [None]
  - VOCAL CORD POLYP [None]
  - ANHEDONIA [None]
  - PAINFUL RESPIRATION [None]
  - MENTAL DISORDER [None]
  - DIZZINESS [None]
  - CHOLELITHIASIS [None]
  - REGURGITATION [None]
  - ASTHMA [None]
  - VOMITING [None]
  - CHOLECYSTITIS INFECTIVE [None]
  - CARPAL TUNNEL SYNDROME [None]
  - EPICONDYLITIS [None]
  - DISTURBANCE IN ATTENTION [None]
  - ABDOMINAL PAIN [None]
  - BILIARY COLIC [None]
  - BIPOLAR I DISORDER [None]
  - MENOPAUSAL SYMPTOMS [None]
  - DYSPEPSIA [None]
  - HEPATITIS B [None]
  - GASTROOESOPHAGEAL REFLUX DISEASE [None]
  - NAUSEA [None]
